FAERS Safety Report 8125762-1 (Version None)
Quarter: 2012Q1

REPORT INFORMATION
  Report Type: 
  Country: None (occurrence: None)
  Receive Date: 20120206
  Receipt Date: 20120126
  Transmission Date: 20120608
  Serious: Yes (Hospitalization, Other)
  Sender: FDA-Public Use
  Company Number: WAES 1111USA02023

PATIENT
  Age: 17 Month
  Sex: Male
  Weight: 6.804 kg

DRUGS (4)
  1. TAB RALTEGRAVIR POTASSIUM UNK [Suspect]
     Indication: HIV INFECTION
     Dosage: 40 MG/BID/PO
     Route: 048
     Dates: start: 20110928
  2. VALPROATE SODIUM [Concomitant]
  3. BACTRIM [Concomitant]
  4. KALETRA [Concomitant]

REACTIONS (8)
  - SPLENOMEGALY [None]
  - HEPATOMEGALY [None]
  - BLOOD BILIRUBIN INCREASED [None]
  - HYPOGLYCAEMIA [None]
  - TOXICITY TO VARIOUS AGENTS [None]
  - LOWER RESPIRATORY TRACT INFECTION [None]
  - DYSPNOEA [None]
  - WHEEZING [None]
